FAERS Safety Report 7139116-8 (Version None)
Quarter: 2010Q4

REPORT INFORMATION
  Report Type: 
  Country: None (occurrence: None)
  Receive Date: 20101202
  Receipt Date: 20101202
  Transmission Date: 20110411
  Serious: Yes (Life-Threatening, Hospitalization)
  Sender: FDA-Public Use
  Company Number: None

PATIENT
  Age: 81 Year
  Sex: Female
  Weight: 68.0396 kg

DRUGS (5)
  1. PRADAXA [Suspect]
     Indication: CEREBROVASCULAR ACCIDENT PROPHYLAXIS
     Dosage: 150 MG BID PO
     Route: 048
     Dates: start: 20101117, end: 20101124
  2. FLEKANIDE [Concomitant]
  3. METOPROLOL TARTRATE [Concomitant]
  4. DIGOXIN [Concomitant]
  5. SYNTHROID [Concomitant]

REACTIONS (1)
  - EMBOLIC STROKE [None]
